FAERS Safety Report 8758511 (Version 1)
Quarter: 2012Q4

REPORT INFORMATION
  Report Type: 
  Country: US (occurrence: US)
  Receive Date: 20120829
  Receipt Date: 20120829
  Transmission Date: 20130627
  Serious: Yes (Other)
  Sender: FDA-Public Use
  Company Number: US-009507513-1208USA007823

PATIENT

DRUGS (2)
  1. NASONEX [Suspect]
     Indication: HYPERSENSITIVITY
     Dosage: one spray in each nostril, bid
     Route: 045
     Dates: start: 2004
  2. BENADRYL [Concomitant]

REACTIONS (8)
  - Vaginal cancer [Recovering/Resolving]
  - Eyelid disorder [Recovering/Resolving]
  - Sinusitis [Recovering/Resolving]
  - Eye haemorrhage [Recovering/Resolving]
  - Eye pain [Recovering/Resolving]
  - Visual impairment [Recovering/Resolving]
  - Drug interaction [Recovering/Resolving]
  - Underdose [Unknown]
